FAERS Safety Report 8509224 (Version 3)
Quarter: 2013Q1

REPORT INFORMATION
  Report Type: Report from Study
  Country: DE (occurrence: DE)
  Receive Date: 20120412
  Receipt Date: 20130122
  Transmission Date: 20140127
  Serious: Yes (Life-Threatening, Other)
  Sender: FDA-Public Use
  Company Number: DE-ABBOTT-12P-062-0921908-00

PATIENT
  Age: 24 Year
  Sex: Female
  Weight: 55 kg

DRUGS (5)
  1. HUMIRA 40 MG/ 0.8 ML PRE-FILLED SYRINGE [Suspect]
     Indication: CROHN^S DISEASE
     Route: 058
     Dates: start: 20110301, end: 20110427
  2. AZATHIOPRIN [Suspect]
     Indication: CROHN^S DISEASE
     Dosage: DAILY DOSE: 125 MILLIGRAM
     Dates: start: 20031001, end: 20110501
  3. CITALOPRAM [Concomitant]
     Indication: PRODUCT USED FOR UNKNOWN INDICATION
     Dates: start: 20050101, end: 20110501
  4. SALOFALK [Concomitant]
     Indication: PRODUCT USED FOR UNKNOWN INDICATION
     Dates: start: 19990101, end: 20110501
  5. IMODIUM [Concomitant]
     Indication: PRODUCT USED FOR UNKNOWN INDICATION
     Dosage: 2-6MG
     Dates: start: 19990101, end: 20110501

REACTIONS (3)
  - Large intestinal stenosis [Recovered/Resolved]
  - Burkitt^s lymphoma [Recovered/Resolved]
  - Colostomy [Recovered/Resolved]
